FAERS Safety Report 21068440 (Version 4)
Quarter: 2022Q4

REPORT INFORMATION
  Report Type: Spontaneous
  Country: BE (occurrence: BE)
  Receive Date: 20220712
  Receipt Date: 20221114
  Transmission Date: 20230112
  Serious: Yes (Other)
  Sender: FDA-Public Use
  Company Number: BE-VIIV HEALTHCARE LIMITED-BE2022101047

PATIENT
  Age: 71 Year
  Sex: Female

DRUGS (9)
  1. RILPIVIRINE [Suspect]
     Active Substance: RILPIVIRINE
     Indication: HIV infection
     Dosage: UNK
     Route: 030
     Dates: start: 20220218
  2. RILPIVIRINE [Suspect]
     Active Substance: RILPIVIRINE
     Dosage: UNK
     Route: 030
     Dates: start: 2022
  3. RILPIVIRINE [Suspect]
     Active Substance: RILPIVIRINE
     Dosage: UNK
     Route: 030
     Dates: start: 20220511, end: 20220514
  4. VOCABRIA [Suspect]
     Active Substance: CABOTEGRAVIR SODIUM
     Indication: HIV infection
     Dosage: UNK
     Route: 030
     Dates: start: 20220218
  5. VOCABRIA [Suspect]
     Active Substance: CABOTEGRAVIR SODIUM
     Dosage: UNK
     Route: 030
     Dates: start: 2022
  6. VOCABRIA [Suspect]
     Active Substance: CABOTEGRAVIR SODIUM
     Dosage: UNK
     Route: 030
     Dates: start: 20220511, end: 20220511
  7. BISOPROLOL FUMARATE\HYDROCHLOROTHIAZIDE [Concomitant]
     Active Substance: BISOPROLOL FUMARATE\HYDROCHLOROTHIAZIDE
     Indication: Product used for unknown indication
     Dosage: UNK, QD 5/12.5 MG
  8. PRAVASTATIN [Concomitant]
     Active Substance: PRAVASTATIN
     Indication: Product used for unknown indication
     Dosage: 40 MG, QD
  9. METFORMIN HYDROCHLORIDE [Concomitant]
     Active Substance: METFORMIN HYDROCHLORIDE
     Indication: Product used for unknown indication
     Dosage: UNK, QD 850

REACTIONS (15)
  - Injection site necrosis [Not Recovered/Not Resolved]
  - Injection site inflammation [Unknown]
  - Impaired healing [Not Recovered/Not Resolved]
  - Pigmentation disorder [Recovered/Resolved]
  - Depressed mood [Unknown]
  - Drug hypersensitivity [Unknown]
  - Injection site pain [Recovering/Resolving]
  - Depression [Unknown]
  - Adverse drug reaction [Unknown]
  - Sciatica [Unknown]
  - Vertebral lateral recess stenosis [Unknown]
  - Macule [Unknown]
  - Skin ulcer [Unknown]
  - Osler^s nodes [Unknown]
  - Janeway lesion [Unknown]

NARRATIVE: CASE EVENT DATE: 20220101
